FAERS Safety Report 24379380 (Version 1)
Quarter: 2024Q3

REPORT INFORMATION
  Report Type: Spontaneous
  Country: US (occurrence: US)
  Receive Date: 20240930
  Receipt Date: 20240930
  Transmission Date: 20241017
  Serious: Yes (Hospitalization)
  Sender: DOMPE FARMACEUTICI
  Company Number: US-FARMAPROD-202409-3312

PATIENT
  Sex: Female

DRUGS (9)
  1. OXERVATE [Suspect]
     Active Substance: CENEGERMIN-BKBJ
     Indication: Neurotrophic keratopathy
     Route: 047
     Dates: start: 20240905
  2. VITAMIN D2 [Concomitant]
     Active Substance: ERGOCALCIFEROL
  3. TEMAZEPAM [Concomitant]
     Active Substance: TEMAZEPAM
  4. TRAMADOL HCL [Concomitant]
     Active Substance: TRAMADOL HYDROCHLORIDE
  5. FUROSEMIDE [Concomitant]
     Active Substance: FUROSEMIDE
  6. ASPIRIN [Concomitant]
     Active Substance: ASPIRIN
  7. METOPROLOL SUCCINATE [Concomitant]
     Active Substance: METOPROLOL SUCCINATE
  8. DORZOLAMIDE AND TIMOLOL [Concomitant]
     Active Substance: DORZOLAMIDE HYDROCHLORIDE\TIMOLOL MALEATE
  9. REPHRESH [Concomitant]
     Dosage: GEL WITH PREFILLED APPLICATOR

REACTIONS (2)
  - Hospitalisation [Unknown]
  - Product dose omission issue [Unknown]
